FAERS Safety Report 5648153-1 (Version None)
Quarter: 2008Q1

REPORT INFORMATION
  Report Type: 
  Country: None (occurrence: None)
  Receive Date: 20080131
  Receipt Date: 20071009
  Transmission Date: 20080703
  Serious: No
  Sender: FDA-Public Use
  Company Number: US200708005440

PATIENT
  Age: 57 Year
  Sex: Female

DRUGS (7)
  1. BYETTA [Suspect]
     Indication: TYPE 2 DIABETES MELLITUS
     Dosage: 5 UG, 2/D, SUBCUTANEOUS ; 10 UG, 2/D, SUBCUTANEOUS ; 10 UG, 2/D, SUBCUTANEOUS
     Route: 058
     Dates: start: 20070701
  2. BYETTA [Suspect]
     Indication: TYPE 2 DIABETES MELLITUS
     Dosage: 5 UG, 2/D, SUBCUTANEOUS ; 10 UG, 2/D, SUBCUTANEOUS ; 10 UG, 2/D, SUBCUTANEOUS
     Route: 058
     Dates: start: 20070801
  3. BYETTA [Suspect]
     Indication: TYPE 2 DIABETES MELLITUS
     Dosage: 5 UG, 2/D, SUBCUTANEOUS ; 10 UG, 2/D, SUBCUTANEOUS ; 10 UG, 2/D, SUBCUTANEOUS
     Route: 058
     Dates: start: 20070901
  4. BYETTA [Suspect]
  5. METFORMIN HCL [Concomitant]
  6. GLIMEPIRIDE [Concomitant]
  7. GLIPIZIDE [Concomitant]

REACTIONS (10)
  - BLOOD GLUCOSE DECREASED [None]
  - BLOOD GLUCOSE INCREASED [None]
  - FEELING JITTERY [None]
  - HYPERHIDROSIS [None]
  - INJECTION SITE DISCOMFORT [None]
  - INJECTION SITE HAEMORRHAGE [None]
  - INJECTION SITE IRRITATION [None]
  - INJECTION SITE SWELLING [None]
  - NAUSEA [None]
  - STOMACH DISCOMFORT [None]
